FAERS Safety Report 12522182 (Version 1)
Quarter: 2016Q3

REPORT INFORMATION
  Report Type: Report from Study
  Country: CA (occurrence: CA)
  Receive Date: 20160701
  Receipt Date: 20160701
  Transmission Date: 20161109
  Serious: Yes (Life-Threatening, Other)
  Sender: FDA-Public Use
  Company Number: CA-TAKEDA-2016TUS008750

PATIENT
  Age: 67 Year
  Sex: Female
  Weight: 92 kg

DRUGS (3)
  1. IRON [Concomitant]
     Active Substance: IRON
  2. TRAMADOL. [Concomitant]
     Active Substance: TRAMADOL
     Indication: TOOTHACHE
     Dosage: UNK
     Dates: start: 20160517
  3. VEDOLIZUMAB [Suspect]
     Active Substance: VEDOLIZUMAB
     Indication: CROHN^S DISEASE
     Dosage: 300 MG, UNK
     Route: 042
     Dates: start: 20160518, end: 20160518

REACTIONS (1)
  - Anaphylactic reaction [Recovered/Resolved]

NARRATIVE: CASE EVENT DATE: 20160518
